FAERS Safety Report 16276492 (Version 1)
Quarter: 2019Q2

REPORT INFORMATION
  Report Type: Spontaneous
  Country: US (occurrence: US)
  Receive Date: 20190505
  Receipt Date: 20190505
  Transmission Date: 20190711
  Serious: No
  Sender: FDA-Public Use
  Company Number: US-NEUROCRINE BIOSCIENCES INC.-2019NBI01049

PATIENT
  Age: 5 Decade
  Sex: Female

DRUGS (6)
  1. LORAZEPAM. [Concomitant]
     Active Substance: LORAZEPAM
  2. INGREZZA [Suspect]
     Active Substance: VALBENAZINE
     Indication: PRODUCT USED FOR UNKNOWN INDICATION
     Route: 048
     Dates: start: 201809
  3. LITHIUM. [Concomitant]
     Active Substance: LITHIUM
  4. LESCOL [Concomitant]
     Active Substance: FLUVASTATIN SODIUM
  5. THYROXINE [Concomitant]
     Active Substance: LEVOTHYROXINE
  6. SPIRIVA [Concomitant]
     Active Substance: TIOTROPIUM BROMIDE MONOHYDRATE

REACTIONS (2)
  - Tardive dyskinesia [Unknown]
  - Therapeutic product effect incomplete [None]
